FAERS Safety Report 7243288-4 (Version None)
Quarter: 2011Q1

REPORT INFORMATION
  Report Type: 
  Country: None (occurrence: None)
  Receive Date: 20110125
  Receipt Date: 20110120
  Transmission Date: 20110831
  Serious: Yes (Hospitalization)
  Sender: FDA-Public Use
  Company Number: IT-ROCHE-754848

PATIENT
  Sex: Female

DRUGS (9)
  1. VASERETIC [Suspect]
     Indication: HYPERTENSION
     Route: 048
     Dates: start: 20090101
  2. SEROQUEL [Suspect]
     Dosage: FREQUENCY: DAILY
     Route: 048
     Dates: start: 20090101
  3. NORTRIPTYLINE HCL [Suspect]
     Route: 048
  4. RIVOTRIL [Suspect]
     Route: 048
  5. RIVOTRIL [Suspect]
     Indication: EPILEPSY
     Dosage: FREQUENCY: DAILY
     Route: 048
     Dates: start: 20090101, end: 20100406
  6. MIRTAZAPINA [Suspect]
     Indication: DEPRESSION
     Dosage: FRQUENCY: DAILY
     Route: 048
     Dates: start: 20090101
  7. LACIPIL [Suspect]
     Indication: HYPERTENSION
     Dosage: FREQUENCY: DAILY
     Route: 048
     Dates: start: 20090101
  8. GABAPENTINA [Suspect]
     Indication: EPILEPSY
     Dosage: FREQUENCY: DAILY
     Route: 048
     Dates: start: 20090101
  9. NORTRIPTYLINE HCL [Suspect]
     Indication: DEPRESSION
     Dosage: FREQUENCY: DAILY
     Route: 048
     Dates: start: 20090101, end: 20100406

REACTIONS (2)
  - SOPOR [None]
  - BRADYPHRENIA [None]
